FAERS Safety Report 19175276 (Version 2)
Quarter: 2022Q2

REPORT INFORMATION
  Report Type: Spontaneous
  Country: FR (occurrence: FR)
  Receive Date: 20210424
  Receipt Date: 20220427
  Transmission Date: 20220721
  Serious: Yes (Other)
  Sender: FDA-Public Use
  Company Number: None

PATIENT
  Age: 83 Year
  Sex: Male

DRUGS (5)
  1. CARBAMAZEPINE [Suspect]
     Active Substance: CARBAMAZEPINE
     Indication: Trigeminal neuralgia
     Dosage: 600 MILLIGRAM DAILY; 300MG2*/DAY, 600MG,FREQUENCY TIME 1DAYS, DURATION 35DAYS
     Route: 048
     Dates: start: 20200813, end: 20200916
  2. CARBAMAZEPINE [Suspect]
     Active Substance: CARBAMAZEPINE
     Dosage: 400 MILLIGRAM DAILY; 400MG,200MG TWICE A DAY,FREQUENCY TIME 1DAYS, DURATION 4YEARS
     Route: 048
     Dates: start: 2016, end: 20200813
  3. CARBAMAZEPINE [Suspect]
     Active Substance: CARBAMAZEPINE
     Dosage: 400MG,200MG 2*/DAY,FREQUENCY TIME 1DAYS
     Route: 030
     Dates: start: 20200916
  4. PRAVASTATIN SODIUM [Suspect]
     Active Substance: PRAVASTATIN SODIUM
     Indication: Dyslipidaemia
     Dosage: 20MG,FREQUENCY TIME DAYS 1DAYS, DURATION 52DAYS
     Route: 048
     Dates: start: 20200731, end: 20200920
  5. PRAVASTATIN SODIUM [Suspect]
     Active Substance: PRAVASTATIN SODIUM
     Dosage: 10MG,THERAPY START DATE ASKU,FREQUENCY TIME 1DAYS, DURATION 1DAYS
     Route: 048
     Dates: end: 20200731

REACTIONS (2)
  - Cholestasis [Recovered/Resolved]
  - Hepatic cytolysis [Recovered/Resolved]

NARRATIVE: CASE EVENT DATE: 20200915
